FAERS Safety Report 20826168 (Version 2)
Quarter: 2022Q2

REPORT INFORMATION
  Report Type: Spontaneous
  Country: CN (occurrence: CN)
  Receive Date: 20220513
  Receipt Date: 20220523
  Transmission Date: 20220721
  Serious: Yes (Hospitalization)
  Sender: FDA-Public Use
  Company Number: CN-PFIZER INC-202200679260

PATIENT
  Age: 68 Year
  Sex: Female
  Weight: 64 kg

DRUGS (3)
  1. PREGABALIN [Suspect]
     Active Substance: PREGABALIN
     Indication: Pain
     Dosage: 75 MG, 2X/DAY
     Route: 048
     Dates: start: 20220419, end: 20220422
  2. ETORICOXIB [Suspect]
     Active Substance: ETORICOXIB
     Indication: Pain
     Dosage: 60 MG, 1X/DAY
     Route: 048
     Dates: start: 20220419, end: 20220422
  3. QU TAN ZHI KE [ANEMARRHENA ASPHODELOIDES RHIZOME;CALCIUM SULFATE;CITRU [Concomitant]
     Indication: Cough
     Dosage: 1.4 G, 3X/DAY
     Route: 048
     Dates: start: 20220420, end: 20220422

REACTIONS (2)
  - Drug eruption [Recovering/Resolving]
  - Dermatitis allergic [Recovering/Resolving]

NARRATIVE: CASE EVENT DATE: 20220422
